FAERS Safety Report 8244660-6 (Version None)
Quarter: 2012Q1

REPORT INFORMATION
  Report Type: 
  Country: None (occurrence: None)
  Receive Date: 20120329
  Receipt Date: 20120123
  Transmission Date: 20120608
  Serious: No
  Sender: FDA-Public Use
  Company Number: US-MYLANLABS-2011S1026116

PATIENT
  Age: 59 Year
  Sex: Male

DRUGS (7)
  1. ATENOLOL [Concomitant]
  2. FENTANYL-100 [Suspect]
     Indication: NECK PAIN
     Dosage: Q48-72H
     Route: 062
     Dates: start: 20090101
  3. LISINOPRIL [Concomitant]
  4. FENTANYL-100 [Suspect]
     Indication: BACK PAIN
     Dosage: Q48-72H
     Route: 062
     Dates: start: 20090101
  5. OXYCODONE HCL [Concomitant]
  6. TRIAMTERENE AND HYDROCHLOROTHIAZIDE [Concomitant]
  7. NORVASC [Concomitant]

REACTIONS (4)
  - NECK PAIN [None]
  - BACK PAIN [None]
  - DRUG WITHDRAWAL SYNDROME [None]
  - DRUG EFFECT DECREASED [None]
